FAERS Safety Report 24324463 (Version 1)
Quarter: 2024Q3

REPORT INFORMATION
  Report Type: Spontaneous
  Country: US (occurrence: US)
  Receive Date: 20240916
  Receipt Date: 20240916
  Transmission Date: 20241017
  Serious: Yes (Hospitalization)
  Sender: TEVA
  Company Number: US-TEVA-VS-3241748

PATIENT
  Age: 38 Year
  Sex: Male

DRUGS (2)
  1. AUSTEDO XR [Suspect]
     Active Substance: DEUTETRABENAZINE
     Indication: Dyskinesia
     Route: 065
     Dates: start: 2024
  2. AUSTEDO XR [Suspect]
     Active Substance: DEUTETRABENAZINE
     Indication: Dyskinesia
     Dosage: 24 MG + 12 MG EVERY EVENING;
     Route: 065

REACTIONS (7)
  - Hospitalisation [Unknown]
  - Product use in unapproved indication [Unknown]
  - Drug titration error [Unknown]
  - Product supply issue [Unknown]
  - Product use issue [Unknown]
  - Dry mouth [Unknown]
  - Therapeutic product effect incomplete [Unknown]

NARRATIVE: CASE EVENT DATE: 20240101
